FAERS Safety Report 12611484 (Version 2)
Quarter: 2016Q3

REPORT INFORMATION
  Report Type: Spontaneous
  Country: US (occurrence: US)
  Receive Date: 20160801
  Receipt Date: 20160810
  Transmission Date: 20161109
  Serious: Yes (Hospitalization)
  Sender: FDA-Public Use
  Company Number: US-BAYER-2016-120040

PATIENT
  Age: 81 Year
  Sex: Male

DRUGS (5)
  1. ACETYLSALICYLIC ACID({=100 MG) [Suspect]
     Active Substance: ASPIRIN
     Indication: PRODUCT USED FOR UNKNOWN INDICATION
     Dosage: UNK
     Route: 065
  2. XARELTO [Interacting]
     Active Substance: RIVAROXABAN
     Indication: ATRIAL FIBRILLATION
  3. XARELTO [Interacting]
     Active Substance: RIVAROXABAN
     Indication: THROMBOSIS PROPHYLAXIS
     Dosage: 20 MG, UNK
     Route: 048
     Dates: start: 20121017, end: 20121103
  4. TICLOPIDINE HYDROCHLORIDE. [Interacting]
     Active Substance: TICLOPIDINE HYDROCHLORIDE
     Indication: PRODUCT USED FOR UNKNOWN INDICATION
     Dosage: UNK
  5. XARELTO [Interacting]
     Active Substance: RIVAROXABAN
     Indication: CEREBROVASCULAR ACCIDENT PROPHYLAXIS
     Dosage: 15 MG, UNK
     Dates: start: 20121017, end: 20121103

REACTIONS (2)
  - Haematuria [Recovered/Resolved]
  - Varicose vein [Unknown]

NARRATIVE: CASE EVENT DATE: 201211
